FAERS Safety Report 9477519 (Version 2)
Quarter: 2013Q4

REPORT INFORMATION
  Report Type: Report from Study
  Country: CA (occurrence: CA)
  Receive Date: 20130827
  Receipt Date: 20131209
  Transmission Date: 20140711
  Serious: Yes (Other)
  Sender: FDA-Public Use
  Company Number: CA-ROCHE-1266565

PATIENT
  Age: 58 Year
  Sex: Male
  Weight: 97 kg

DRUGS (7)
  1. AVASTIN [Suspect]
     Indication: MALIGNANT GLIOMA
     Route: 042
     Dates: start: 20130816, end: 20131120
  2. DILANTIN [Concomitant]
  3. ETOPOSIDE [Concomitant]
  4. DECADRON [Concomitant]
  5. ATIVAN [Concomitant]
     Indication: CONVULSION
     Dosage: AS REQUIRED
     Route: 065
  6. TECTA [Concomitant]
  7. VITAMIN C [Concomitant]

REACTIONS (1)
  - Convulsion [Recovered/Resolved]
